FAERS Safety Report 9387140 (Version 7)
Quarter: 2014Q2

REPORT INFORMATION
  Report Type: Spontaneous
  Country: DK (occurrence: None)
  Receive Date: 20130702
  Receipt Date: 20140610
  Transmission Date: 20141212
  Serious: Yes (Other)
  Sender: FDA-Public Use
  Company Number: AUR-APL-2013-05473

PATIENT
  Age: 41 Year
  Sex: Female

DRUGS (7)
  1. FLUCONAZOLE [Suspect]
     Indication: ANTIFUNGAL PROPHYLAXIS
     Dosage: 100 MG (100 MG, 1 IN 1 D), UNKNOWN
  2. MIRTAZAPINE [Suspect]
     Indication: PRODUCT USED FOR UNKNOWN INDICATION
  3. VINCRISTINE [Suspect]
     Indication: EWING^S SARCOMA
     Dosage: 2MG SINGLE DOSE CYCLIC, UNKNOWN?
  4. ETOPOSIDE [Suspect]
     Indication: EWING^S SARCOMA
     Dosage: 900MG OVER 9 DAYS, UNKNOWN
  5. IFOSFAMIDE (IFOSFAMIDE) [Suspect]
     Indication: EWING^S SARCOMA
     Dosage: 6G OVER 9 DAYS, UNKNOWN
  6. PREDNISOLONE [Suspect]
     Indication: EWING^S SARCOMA
  7. DOXORUBICIN HYDROCHLORIDE [Suspect]
     Indication: EWING^S SARCOMA
     Dosage: (40 MG), UNKNOWN

REACTIONS (16)
  - Neurotoxicity [None]
  - Renal impairment [None]
  - Mucosal inflammation [None]
  - Bone marrow failure [None]
  - Candida infection [None]
  - Paraesthesia [None]
  - Paraesthesia [None]
  - Drug interaction [None]
  - Drug metabolising enzyme decreased [None]
  - Motor dysfunction [None]
  - Grip strength decreased [None]
  - Inhibitory drug interaction [None]
  - Drug level increased [None]
  - Oral candidiasis [None]
  - Paraesthesia [None]
  - Neuropathy peripheral [None]
